FAERS Safety Report 5683091-X (Version None)
Quarter: 2008Q1

REPORT INFORMATION
  Report Type: 
  Country: None (occurrence: None)
  Receive Date: 20080327
  Receipt Date: 20080317
  Transmission Date: 20080703
  Serious: Yes (Other)
  Sender: FDA-Public Use
  Company Number: CZ-ELI_LILLY_AND_COMPANY-CZ200803004022

PATIENT
  Age: 16 Year
  Sex: Female

DRUGS (1)
  1. XIGRIS [Suspect]
     Indication: MENINGOCOCCAL SEPSIS
     Dosage: UNK, UNKNOWN
     Route: 042
     Dates: start: 20080314, end: 20080316

REACTIONS (1)
  - THROMBOCYTOPENIA [None]
